FAERS Safety Report 7956325-6 (Version None)
Quarter: 2011Q4

REPORT INFORMATION
  Report Type: 
  Country: None (occurrence: None)
  Receive Date: 20111125
  Receipt Date: 20111114
  Transmission Date: 20120403
  Serious: Yes (Hospitalization)
  Sender: FDA-Public Use
  Company Number: 2011029185

PATIENT
  Age: 35 Year
  Sex: Female
  Weight: 218 kg

DRUGS (2)
  1. HEPARIN [Concomitant]
  2. BERINERT (C1 ESTERASE INHIBITOR, HUMAN) [Suspect]
     Indication: ENZYME ABNORMALITY
     Dosage: (500 UNIT VIAL; 2000 UNITS (40 ML, 4 ML/MIN) PRN INTRAVENOUS BOLUS), (INTRAVENOUS BOLUS)
     Route: 040
     Dates: start: 20100728

REACTIONS (1)
  - THROMBOSIS [None]
